FAERS Safety Report 23153465 (Version 9)
Quarter: 2025Q1

REPORT INFORMATION
  Report Type: Spontaneous
  Country: CA (occurrence: CA)
  Receive Date: 20231107
  Receipt Date: 20250114
  Transmission Date: 20250409
  Serious: Yes (Other)
  Sender: PFIZER
  Company Number: CA-PFIZER INC-202300264786

PATIENT
  Age: 33 Year
  Sex: Male
  Weight: 117 kg

DRUGS (9)
  1. ABRILADA [Suspect]
     Active Substance: ADALIMUMAB-AFZB
     Indication: Crohn^s disease
     Route: 058
     Dates: start: 20221107, end: 2023
  2. ABRILADA [Suspect]
     Active Substance: ADALIMUMAB-AFZB
     Route: 058
     Dates: start: 20231016
  3. ABRILADA [Suspect]
     Active Substance: ADALIMUMAB-AFZB
     Dosage: 40 MG 1X/DAY PREFILLED PEN
     Route: 058
     Dates: start: 2023
  4. ABRILADA [Suspect]
     Active Substance: ADALIMUMAB-AFZB
     Dosage: 40 MG, WEEKLY, PREFILLED PEN
     Route: 058
     Dates: start: 2023
  5. ABRILADA [Suspect]
     Active Substance: ADALIMUMAB-AFZB
     Dosage: 40 MG 1X/DAY PREFILLED PEN
     Route: 058
     Dates: start: 20231120
  6. ABRILADA [Suspect]
     Active Substance: ADALIMUMAB-AFZB
     Dosage: 40 MG 1X/DAY PREFILLED PEN
     Route: 058
     Dates: start: 20231211, end: 2024
  7. DULOXETINE [Concomitant]
     Active Substance: DULOXETINE
  8. DULOXETINE [Concomitant]
     Active Substance: DULOXETINE
  9. CHOLESTYRAMINE [Concomitant]
     Active Substance: CHOLESTYRAMINE

REACTIONS (11)
  - Haematochezia [Not Recovered/Not Resolved]
  - Condition aggravated [Not Recovered/Not Resolved]
  - Arthralgia [Not Recovered/Not Resolved]
  - Drug ineffective [Unknown]
  - Spondylitis [Unknown]
  - Loss of personal independence in daily activities [Not Recovered/Not Resolved]
  - Abdominal distension [Not Recovered/Not Resolved]
  - Back pain [Unknown]
  - Psoriasis [Unknown]
  - Blood test abnormal [Unknown]
  - Off label use [Unknown]

NARRATIVE: CASE EVENT DATE: 20230101
